FAERS Safety Report 14510187 (Version 2)
Quarter: 2018Q1

REPORT INFORMATION
  Report Type: Spontaneous
  Country: JP (occurrence: JP)
  Receive Date: 20180209
  Receipt Date: 20180312
  Transmission Date: 20180509
  Serious: Yes (Hospitalization)
  Sender: FDA-Public Use
  Company Number: JP-JNJFOC-20180209799

PATIENT
  Age: 10 Decade
  Sex: Female

DRUGS (1)
  1. XARELTO [Suspect]
     Active Substance: RIVAROXABAN
     Indication: ATRIAL FIBRILLATION
     Route: 048
     Dates: start: 20170401, end: 20180126

REACTIONS (3)
  - Fall [Unknown]
  - Haematuria [Recovering/Resolving]
  - Pubis fracture [Unknown]

NARRATIVE: CASE EVENT DATE: 20171220
